FAERS Safety Report 17293121 (Version 1)
Quarter: 2020Q1

REPORT INFORMATION
  Report Type: Spontaneous
  Country: US (occurrence: US)
  Receive Date: 20200118
  Receipt Date: 20200118
  Transmission Date: 20200409
  Serious: Yes (Other)
  Sender: FDA-Public Use
  Company Number: None

PATIENT
  Age: 32 Year
  Sex: Female
  Weight: 60.75 kg

DRUGS (2)
  1. ZOLOFT [Concomitant]
     Active Substance: SERTRALINE HYDROCHLORIDE
  2. SKIN KUSHION BY MONAT BODY BUTTER (CBD) [Suspect]
     Active Substance: CANNABIDIOL\HERBALS
     Indication: THERAPEUTIC SKIN CARE TOPICAL
     Route: 061
     Dates: start: 20200102, end: 20200102

REACTIONS (3)
  - Illusion [None]
  - Fear [None]
  - Anxiety [None]

NARRATIVE: CASE EVENT DATE: 20200102
